FAERS Safety Report 7212038-X (Version None)
Quarter: 2010Q4

REPORT INFORMATION
  Report Type: 
  Country: None (occurrence: None)
  Receive Date: 20101229
  Receipt Date: 20101220
  Transmission Date: 20110411
  Serious: Yes (Hospitalization)
  Sender: FDA-Public Use
  Company Number: 2010US004613

PATIENT
  Age: 31 Year
  Sex: Female
  Weight: 118 kg

DRUGS (1)
  1. AMEVIVE FOR IM (ALEFACEPT) INJECTION [Suspect]
     Indication: PSORIASIS
     Dosage: 15 MG, WEEKLY, INTRAMUSCULAR
     Route: 030
     Dates: start: 20051201, end: 20060228

REACTIONS (1)
  - DEEP VEIN THROMBOSIS [None]
